FAERS Safety Report 8160863-3 (Version None)
Quarter: 2012Q1

REPORT INFORMATION
  Report Type: 
  Country: None (occurrence: None)
  Receive Date: 20120223
  Receipt Date: 20120221
  Transmission Date: 20120608
  Serious: Yes (Other)
  Sender: FDA-Public Use
  Company Number: PHHY2012IT008948

PATIENT
  Sex: Female

DRUGS (2)
  1. ASPIRIN [Concomitant]
  2. VOLTAREN [Suspect]
     Indication: ARTHRALGIA
     Dosage: 1 DF, (ONE POSOLOGIC UNIT)
     Route: 030
     Dates: start: 20111230, end: 20111230

REACTIONS (3)
  - SPEECH DISORDER [None]
  - ERYTHEMA [None]
  - FACE OEDEMA [None]
